FAERS Safety Report 9684713 (Version 1)
Quarter: 2013Q4

REPORT INFORMATION
  Report Type: Spontaneous
  Country: DE (occurrence: DE)
  Receive Date: 20131112
  Receipt Date: 20131112
  Transmission Date: 20140711
  Serious: Yes (Other)
  Sender: FDA-Public Use
  Company Number: DE-ASTRAZENECA-2013SE81458

PATIENT
  Age: 23 Year
  Sex: Female

DRUGS (13)
  1. SEROQUEL PROLONG [Suspect]
     Route: 048
     Dates: start: 20120905
  2. SEROQUEL PROLONG [Interacting]
     Route: 048
     Dates: start: 20120906
  3. SEROQUEL PROLONG [Interacting]
     Route: 048
     Dates: start: 20120907
  4. SEROQUEL PROLONG [Interacting]
     Route: 048
     Dates: start: 20120909
  5. SEROQUEL PROLONG [Interacting]
     Route: 048
     Dates: start: 20120919
  6. TREVILOR [Interacting]
     Route: 048
     Dates: start: 20120914
  7. TREVILOR [Interacting]
     Route: 048
     Dates: start: 20120918, end: 20120918
  8. ELONTRIL [Interacting]
     Route: 048
     Dates: start: 20120719
  9. ELONTRIL [Interacting]
     Route: 048
     Dates: start: 20120731
  10. ELONTRIL [Interacting]
     Route: 048
     Dates: start: 20120801
  11. ELONTRIL [Interacting]
     Route: 048
     Dates: start: 20120914, end: 20120917
  12. ZOLPIDEM [Concomitant]
     Route: 048
     Dates: start: 20120718, end: 20120923
  13. ATOSIL [Concomitant]
     Route: 048
     Dates: start: 20120914

REACTIONS (6)
  - Drug interaction [Recovered/Resolved]
  - Sinus tachycardia [Recovered/Resolved]
  - Diplopia [Recovered/Resolved]
  - Blood pressure increased [Recovered/Resolved]
  - Epistaxis [Recovered/Resolved]
  - Dizziness [Recovered/Resolved]
